FAERS Safety Report 16735797 (Version 3)
Quarter: 2019Q3

REPORT INFORMATION
  Report Type: Report from Study
  Country: AU (occurrence: AU)
  Receive Date: 20190823
  Receipt Date: 20190927
  Transmission Date: 20191005
  Serious: Yes (Death, Hospitalization, Other)
  Sender: FDA-Public Use
  Company Number: AU-BRISTOL-MYERS SQUIBB COMPANY-BMS-2019-080420

PATIENT
  Age: 78 Year
  Sex: Female

DRUGS (1)
  1. IPILIMUMAB [Suspect]
     Active Substance: IPILIMUMAB
     Indication: MALIGNANT MELANOMA
     Dosage: 3 MILLIGRAM/KILOGRAM
     Route: 042
     Dates: start: 20190530, end: 20190620

REACTIONS (4)
  - Multiple organ dysfunction syndrome [Fatal]
  - Pulmonary embolism [Not Recovered/Not Resolved]
  - General physical health deterioration [Recovered/Resolved with Sequelae]
  - Atrial fibrillation [Unknown]

NARRATIVE: CASE EVENT DATE: 20190803
